FAERS Safety Report 8927905 (Version 1)
Quarter: 2012Q4

REPORT INFORMATION
  Report Type: Spontaneous
  Country: US (occurrence: None)
  Receive Date: 20121126
  Receipt Date: 20121126
  Transmission Date: 20130627
  Serious: Yes (Hospitalization)
  Sender: FDA-Public Use
  Company Number: None

PATIENT
  Age: 117 None
  Sex: Female
  Weight: 117 kg

DRUGS (14)
  1. CARBOPLATIN [Suspect]
  2. LEXAPRO [Concomitant]
  3. LOVENOX [Concomitant]
  4. MAGNESIUM OXIDE [Concomitant]
  5. NEURONTIN [Concomitant]
  6. NEXIUM [Concomitant]
  7. NIFEREX [Concomitant]
  8. NORCO [Concomitant]
  9. SAXAGLIPTIN [Concomitant]
  10. SIMVASTATIN [Concomitant]
  11. SYNTHROID [Concomitant]
  12. TYLENOL [Concomitant]
  13. ZOFRAN [Concomitant]
  14. ZYRTEC [Concomitant]

REACTIONS (5)
  - Dehydration [None]
  - Nausea [None]
  - Vomiting [None]
  - Malnutrition [None]
  - Diarrhoea [None]
